FAERS Safety Report 23014571 (Version 2)
Quarter: 2023Q4

REPORT INFORMATION
  Report Type: Spontaneous
  Country: US (occurrence: US)
  Receive Date: 20231002
  Receipt Date: 20231005
  Transmission Date: 20240110
  Serious: No
  Sender: FDA-Public Use
  Company Number: US-AMGEN-USASP2023172665

PATIENT

DRUGS (3)
  1. AIMOVIG [Suspect]
     Active Substance: ERENUMAB-AOOE
     Indication: Migraine
     Dosage: 70 MILLIGRAM
     Route: 065
  2. Triptan [Concomitant]
  3. DOMPERIDONE [Concomitant]
     Active Substance: DOMPERIDONE
     Indication: Nausea

REACTIONS (2)
  - Therapeutic product effect incomplete [Unknown]
  - General physical health deterioration [Unknown]
